FAERS Safety Report 7581402-1 (Version None)
Quarter: 2011Q2

REPORT INFORMATION
  Report Type: 
  Country: None (occurrence: None)
  Receive Date: 20110629
  Receipt Date: 20110615
  Transmission Date: 20111010
  Serious: Yes (Hospitalization)
  Sender: FDA-Public Use
  Company Number: PHHY2011US52944

PATIENT
  Sex: Male

DRUGS (1)
  1. GLEEVEC [Suspect]
     Indication: GASTRIC CANCER
     Dosage: 400 MG, UNK
     Route: 048
     Dates: start: 20101201

REACTIONS (3)
  - RHINORRHOEA [None]
  - RHINITIS [None]
  - MICTURITION DISORDER [None]
